FAERS Safety Report 12299652 (Version 1)
Quarter: 2016Q2

REPORT INFORMATION
  Report Type: Spontaneous
  Country: US (occurrence: US)
  Receive Date: 20160425
  Receipt Date: 20160425
  Transmission Date: 20160815
  Serious: No
  Sender: FDA-Public Use
  Company Number: US-PFIZER INC-2016223585

PATIENT
  Age: 36 Year
  Sex: Male

DRUGS (1)
  1. BICILLIN L-A [Suspect]
     Active Substance: PENICILLIN G BENZATHINE
     Indication: SYPHILIS
     Dosage: 2400000 IU, 2X/WEEK FOR FOUR WEEKS
     Route: 030
     Dates: start: 201604

REACTIONS (3)
  - Syringe issue [Unknown]
  - Needle issue [None]
  - Injection site haemorrhage [Unknown]

NARRATIVE: CASE EVENT DATE: 201604
